FAERS Safety Report 19274425 (Version 2)
Quarter: 2021Q3

REPORT INFORMATION
  Report Type: Report from Study
  Country: US (occurrence: US)
  Receive Date: 20210519
  Receipt Date: 20210823
  Transmission Date: 20211014
  Serious: Yes (Other)
  Sender: FDA-Public Use
  Company Number: US-PFIZER INC-2021550642

PATIENT
  Age: 63 Year
  Sex: Female

DRUGS (3)
  1. DOXORUBICIN HCL [Suspect]
     Active Substance: DOXORUBICIN HYDROCHLORIDE
     Indication: PSEUDOMYXOMA PERITONEI
     Dosage: 15 MG/M2, IN 1.5% DEXTROSE PERITONEAL DIALYSIS SOLUTION AT A VOLUME OF 1.5 L/M2
  2. MITOMYCIN C [Suspect]
     Active Substance: MITOMYCIN
     Indication: PSEUDOMYXOMA PERITONEI
     Dosage: 15 MG/M2 IN 1.5% DEXTROSE PERITONEAL DIALYSIS SOLUTION AT A VOLUME OF 1.5 L/M2.
  3. 5?FLUOROURACIL [FLUOROURACIL SODIUM] [Suspect]
     Active Substance: FLUOROURACIL SODIUM
     Indication: PSEUDOMYXOMA PERITONEI
     Dosage: 400 MG/M2

REACTIONS (1)
  - Pancreatitis [Unknown]
